FAERS Safety Report 8972422 (Version 1)
Quarter: 2012Q4

REPORT INFORMATION
  Report Type: 
  Country: GB (occurrence: GB)
  Receive Date: 20121218
  Receipt Date: 20121218
  Transmission Date: 20130627
  Serious: Yes (Other)
  Sender: FDA-Public Use
  Company Number: GB-ROCHE-1170393

PATIENT
  Age: 64 Year
  Sex: Male

DRUGS (11)
  1. ORLISTAT [Suspect]
     Indication: OBESITY
     Route: 048
     Dates: start: 20121128
  2. RAMIPRIL [Suspect]
     Indication: HYPERTENSION
     Route: 048
     Dates: start: 20120120, end: 20121204
  3. BISOPROLOL [Concomitant]
  4. LANSOPRAZOLE [Concomitant]
  5. METFORMIN [Concomitant]
  6. QUININE BISULFATE [Concomitant]
  7. QVAR [Concomitant]
  8. SALBUTAMOL [Concomitant]
  9. SIMVASTATIN [Concomitant]
  10. WARFARIN [Concomitant]
  11. LISINOPRIL [Concomitant]

REACTIONS (1)
  - Malaise [Recovered/Resolved]
